FAERS Safety Report 20911454 (Version 1)
Quarter: 2022Q2

REPORT INFORMATION
  Report Type: Spontaneous
  Country: CN (occurrence: None)
  Receive Date: 20220603
  Receipt Date: 20220603
  Transmission Date: 20220721
  Serious: Yes (Other)
  Sender: FDA-Public Use
  Company Number: 2022A204585

PATIENT
  Age: 80 Year
  Sex: Male
  Weight: 68 kg

DRUGS (2)
  1. PULMICORT TURBUHALER [Suspect]
     Active Substance: BUDESONIDE
     Indication: Asthma
     Dosage: 2.00 VIALS, TWICE EVERY ONE DAY
     Route: 055
     Dates: start: 20220210, end: 20220216
  2. ATROVENT [Concomitant]
     Active Substance: IPRATROPIUM BROMIDE
     Indication: Asthma
     Dosage: 500.00 UG, TWICE EVERY ONE DAY
     Route: 055
     Dates: start: 20220210, end: 20220216

REACTIONS (3)
  - Leukoplakia oral [Recovering/Resolving]
  - Fungal infection [Recovering/Resolving]
  - Dysphonia [Recovering/Resolving]

NARRATIVE: CASE EVENT DATE: 20220216
